FAERS Safety Report 21713991 (Version 1)
Quarter: 2022Q4

REPORT INFORMATION
  Report Type: Spontaneous
  Country: US (occurrence: None)
  Receive Date: 20221209
  Receipt Date: 20221209
  Transmission Date: 20230113
  Serious: Yes (Hospitalization)
  Sender: FDA-Public Use
  Company Number: None

PATIENT
  Age: 57 Year
  Sex: Male
  Weight: 75.15 kg

DRUGS (1)
  1. GAMUNEX-C [Suspect]
     Active Substance: HUMAN IMMUNOGLOBULIN G
     Indication: Platelet count decreased
     Dosage: OTHER QUANTITY : 700 MG;?FREQUENCY : DAILY;?
     Route: 042
     Dates: start: 20221106, end: 20221110

REACTIONS (5)
  - Back pain [None]
  - Abdominal pain [None]
  - Headache [None]
  - Platelet count decreased [None]
  - Chromaturia [None]

NARRATIVE: CASE EVENT DATE: 20221111
